FAERS Safety Report 21682104 (Version 6)
Quarter: 2025Q1

REPORT INFORMATION
  Report Type: Spontaneous
  Country: US (occurrence: US)
  Receive Date: 20221205
  Receipt Date: 20250225
  Transmission Date: 20250409
  Serious: Yes (Other)
  Sender: PFIZER
  Company Number: US-PFIZER INC-PV202200061979

PATIENT
  Age: 72 Year
  Sex: Female
  Weight: 61.224 kg

DRUGS (1)
  1. XELJANZ [Suspect]
     Active Substance: TOFACITINIB CITRATE
     Indication: Rheumatoid arthritis
     Dosage: 5 MG, 1X/DAY
     Route: 048

REACTIONS (5)
  - Skin cancer [Unknown]
  - Malignant neoplasm progression [Unknown]
  - Malaise [Unknown]
  - Laryngitis [Unknown]
  - Product prescribing error [Unknown]
